FAERS Safety Report 7599654-0 (Version None)
Quarter: 2011Q2

REPORT INFORMATION
  Report Type: 
  Country: None (occurrence: None)
  Receive Date: 20110629
  Receipt Date: 20110615
  Transmission Date: 20111010
  Serious: Yes (Life-Threatening, Other)
  Sender: FDA-Public Use
  Company Number: 2011MA007218

PATIENT
  Age: 4 Year
  Sex: Male

DRUGS (2)
  1. PHENYTOIN [Suspect]
     Indication: STATUS EPILEPTICUS
     Dosage: 15 MG/KG;X1;IV
     Route: 042
  2. VALPROATE SODIUM [Concomitant]

REACTIONS (13)
  - VISUAL IMPAIRMENT [None]
  - MYDRIASIS [None]
  - HYPERTENSION [None]
  - ANXIETY [None]
  - TACHYPNOEA [None]
  - FEAR [None]
  - TACHYCARDIA [None]
  - HALLUCINATION [None]
  - HALLUCINATION, TACTILE [None]
  - HALLUCINATION, VISUAL [None]
  - AUTONOMIC NERVOUS SYSTEM IMBALANCE [None]
  - HYPERTHERMIA [None]
  - HYPERHIDROSIS [None]
